FAERS Safety Report 14590483 (Version 12)
Quarter: 2021Q2

REPORT INFORMATION
  Report Type: Report from Study
  Country: CA (occurrence: CA)
  Receive Date: 20180302
  Receipt Date: 20210422
  Transmission Date: 20210716
  Serious: Yes (Death, Other)
  Sender: FDA-Public Use
  Company Number: PHHY2017CA090039

PATIENT
  Age: 49 Year
  Sex: Female

DRUGS (5)
  1. SANDOSTATIN LAR DEPOT [Suspect]
     Active Substance: OCTREOTIDE ACETATE
  2. SANDOSTATIN LAR DEPOT [Suspect]
     Active Substance: OCTREOTIDE ACETATE
  3. METFORMIN [Suspect]
     Active Substance: METFORMIN HYDROCHLORIDE
     Indication: PRODUCT USED FOR UNKNOWN INDICATION
     Dosage: UNK
     Route: 065
  4. SANDOSTATIN LAR DEPOT [Suspect]
     Active Substance: OCTREOTIDE ACETATE
     Indication: CARCINOID TUMOUR OF THE PANCREAS
     Dosage: 20 MG, Q4W (EVERY 4 WEEKS)
     Route: 030
     Dates: start: 20170525
  5. SANDOSTATIN [Suspect]
     Active Substance: OCTREOTIDE ACETATE
     Indication: CARCINOID TUMOUR OF THE PANCREAS
     Dosage: UNK
     Route: 058

REACTIONS (38)
  - Death [Fatal]
  - Abdominal discomfort [Unknown]
  - Rhinorrhoea [Unknown]
  - Flushing [Unknown]
  - Neoplasm progression [Unknown]
  - Herpes zoster [Unknown]
  - Influenza [Unknown]
  - Asthenia [Unknown]
  - Injection site pain [Unknown]
  - Fatigue [Unknown]
  - Drug ineffective [Unknown]
  - Back pain [Unknown]
  - Odynophagia [Unknown]
  - Vomiting [Unknown]
  - Back pain [Recovered/Resolved]
  - Sluggishness [Unknown]
  - Heavy exposure to ultraviolet light [Unknown]
  - Obstructive airways disorder [Unknown]
  - Abdominal distension [Unknown]
  - Abdominal pain upper [Unknown]
  - Dyspnoea [Unknown]
  - Cough [Not Recovered/Not Resolved]
  - Neoplasm malignant [Unknown]
  - Arthralgia [Recovered/Resolved]
  - Malaise [Unknown]
  - Dizziness [Unknown]
  - Chronic obstructive pulmonary disease [Unknown]
  - Pulmonary mass [Unknown]
  - Chest pain [Unknown]
  - Oropharyngeal pain [Unknown]
  - Influenza [Recovered/Resolved]
  - Pain [Unknown]
  - Diarrhoea [Unknown]
  - Diabetes mellitus [Unknown]
  - Weight increased [Unknown]
  - Hernia [Unknown]
  - Headache [Unknown]
  - Nausea [Unknown]

NARRATIVE: CASE EVENT DATE: 2017
